FAERS Safety Report 18458669 (Version 1)
Quarter: 2020Q4

REPORT INFORMATION
  Report Type: Spontaneous
  Country: GB (occurrence: GB)
  Receive Date: 20201103
  Receipt Date: 20201103
  Transmission Date: 20210114
  Serious: Yes (Hospitalization)
  Sender: FDA-Public Use
  Company Number: GB-PFIZER INC-2020422284

PATIENT
  Age: 76 Year
  Sex: Male

DRUGS (3)
  1. CLEXANE [Concomitant]
     Active Substance: ENOXAPARIN SODIUM
     Route: 058
  2. DOCETAXEL. [Suspect]
     Active Substance: DOCETAXEL
     Dosage: 75 MG/M2, QCY
     Route: 042
     Dates: start: 20180425, end: 20180425
  3. DOCETAXEL. [Suspect]
     Active Substance: DOCETAXEL
     Indication: PROSTATE CANCER
     Dosage: 75 MG/M2, QCY
     Route: 042
     Dates: start: 20171011, end: 20171011

REACTIONS (4)
  - Dry skin [Unknown]
  - Urinary tract infection [Unknown]
  - Nail disorder [Unknown]
  - Palpitations [Unknown]
